FAERS Safety Report 5871505-1 (Version None)
Quarter: 2008Q3

REPORT INFORMATION
  Report Type: 
  Country: None (occurrence: None)
  Receive Date: 20080905
  Receipt Date: 20080304
  Transmission Date: 20090109
  Serious: No
  Sender: FDA-Public Use
  Company Number: A0713302A

PATIENT
  Age: 63 Year
  Sex: Female

DRUGS (3)
  1. REQUIP [Suspect]
     Indication: RESTLESS LEGS SYNDROME
     Route: 048
     Dates: start: 20080301
  2. DIABETES MEDICATION [Concomitant]
  3. ANTI-CHOLESTEROL MEDICATION [Concomitant]

REACTIONS (1)
  - RESTLESS LEGS SYNDROME [None]
